FAERS Safety Report 19060769 (Version 5)
Quarter: 2022Q2

REPORT INFORMATION
  Report Type: Report from Study
  Country: JP (occurrence: None)
  Receive Date: 20210325
  Receipt Date: 20220413
  Transmission Date: 20220720
  Serious: Yes (Other)
  Sender: FDA-Public Use
  Company Number: JP-MERCK HEALTHCARE KGAA-9226458

PATIENT
  Age: 65 Year
  Sex: Female

DRUGS (9)
  1. TEPMETKO [Suspect]
     Active Substance: TEPOTINIB HYDROCHLORIDE
     Indication: Non-small cell lung cancer
     Route: 048
     Dates: start: 20210123
  2. MIYA-BM [Concomitant]
     Active Substance: CLOSTRIDIUM BUTYRICUM SPORES STRAIN M-55
     Indication: Product used for unknown indication
     Dosage: AFTER EACH MEAL
     Dates: start: 20210122
  3. BITSAN [Concomitant]
     Indication: Product used for unknown indication
     Dosage: AFTER EACH MEAL
     Dates: start: 20210122
  4. FAMOTIDINE [Concomitant]
     Active Substance: FAMOTIDINE
     Indication: Product used for unknown indication
     Dosage: ONCE DAILY AFTER LUNCH
     Dates: start: 20210122
  5. XYZAL [Concomitant]
     Active Substance: LEVOCETIRIZINE DIHYDROCHLORIDE
     Indication: Product used for unknown indication
     Dosage: BEFORE BED
     Dates: start: 20210128, end: 20210207
  6. OLOPATADINE [Concomitant]
     Active Substance: OLOPATADINE
     Indication: Product used for unknown indication
     Dosage: AFTER BREAKFAST AND SUPPER
     Dates: start: 20210208
  7. BETAMETHASONE DIPROPIONATE [Concomitant]
     Active Substance: BETAMETHASONE DIPROPIONATE
     Indication: Product used for unknown indication
     Dosage: TOPICAL USE ON TRUNK
     Dates: start: 20210208
  8. LOCOID [Concomitant]
     Active Substance: HYDROCORTISONE BUTYRATE
     Indication: Product used for unknown indication
     Dosage: TOPICAL USE ON FACE
     Dates: start: 20210208
  9. PETROLATUM [Concomitant]
     Active Substance: PETROLATUM
     Indication: Product used for unknown indication
     Dosage: SEVERAL TIMES DAILY
     Route: 048
     Dates: start: 20210208

REACTIONS (2)
  - Alopecia [Not Recovered/Not Resolved]
  - Dermatitis acneiform [Unknown]

NARRATIVE: CASE EVENT DATE: 20210224
